FAERS Safety Report 13902929 (Version 2)
Quarter: 2017Q3

REPORT INFORMATION
  Report Type: Spontaneous
  Country: KR (occurrence: KR)
  Receive Date: 20170824
  Receipt Date: 20170904
  Transmission Date: 20171127
  Serious: Yes (Hospitalization)
  Sender: FDA-Public Use
  Company Number: KR-009507513-1701KOR006178

PATIENT
  Age: 78 Year
  Sex: Male
  Weight: 57.4 kg

DRUGS (22)
  1. CISPLATIN. [Concomitant]
     Active Substance: CISPLATIN
     Dosage: 66 MG, ONCE, (CONCENTRATION: 50MG/100ML/) CYCLE 2
     Route: 042
     Dates: start: 20150903, end: 20150903
  2. ALOXI [Concomitant]
     Active Substance: PALONOSETRON HYDROCHLORIDE
     Indication: PROPHYLAXIS OF NAUSEA AND VOMITING
     Dosage: 0.25 MG, ONCE
     Route: 042
     Dates: start: 20160805, end: 20160805
  3. LIPITOR [Concomitant]
     Active Substance: ATORVASTATIN CALCIUM
     Indication: HYPERTENSION
     Dosage: 1 TABLET (20 MG), QD
     Route: 048
     Dates: start: 20160805, end: 20160917
  4. APROVEL [Concomitant]
     Active Substance: IRBESARTAN
     Indication: HYPERTENSION
     Dosage: 1 TABLET (150 MG), QD
     Route: 048
     Dates: start: 20160805, end: 20160917
  5. CISPLATIN. [Concomitant]
     Active Substance: CISPLATIN
     Indication: GASTRIC CANCER
     Dosage: 84 MG, ONCE, (CONCENTRATION: 50MG/100ML/) CYCLE 1
     Route: 042
     Dates: start: 20150805, end: 20150805
  6. DEXAMETHASONE SODIUM PHOSPHATE. [Concomitant]
     Active Substance: DEXAMETHASONE SODIUM PHOSPHATE
     Indication: PROPHYLAXIS OF NAUSEA AND VOMITING
     Dosage: 10 MG, ONCE
     Route: 042
     Dates: start: 20160805, end: 20160805
  7. ALOXI [Concomitant]
     Active Substance: PALONOSETRON HYDROCHLORIDE
     Dosage: 0.25 MG, ONCE
     Route: 042
     Dates: start: 20160903, end: 20160903
  8. LASIX [Concomitant]
     Active Substance: FUROSEMIDE
     Indication: PROPHYLAXIS
     Dosage: 20 MG, ONCE (STRENGTH 20MG/2ML)
     Route: 042
     Dates: start: 20160805, end: 20160805
  9. LASIX [Concomitant]
     Active Substance: FUROSEMIDE
     Dosage: (STRENGTH 20MG/2ML) 20 MG, ONCE
     Route: 042
     Dates: start: 20160903, end: 20160903
  10. LASIX [Concomitant]
     Active Substance: FUROSEMIDE
     Dosage: (STRENGTH 20MG/2ML) 20 MG, BID
     Route: 042
     Dates: start: 20160917, end: 20160917
  11. NORVASC [Concomitant]
     Active Substance: AMLODIPINE BESYLATE
     Indication: HYPERTENSION
     Dosage: 1 TABLET (5 MG), QD
     Route: 048
     Dates: start: 20160805, end: 20160917
  12. DEXAMETHASONE SODIUM PHOSPHATE. [Concomitant]
     Active Substance: DEXAMETHASONE SODIUM PHOSPHATE
     Dosage: 10 MG, ONCE
     Route: 042
     Dates: start: 20160903, end: 20160903
  13. MUTERAN [Concomitant]
     Active Substance: ACETYLCYSTEINE
     Indication: PROPHYLAXIS
     Dosage: 4 AP, BID. CONCENTRATION: 100 MG/ML (3ML/A)
     Route: 042
     Dates: start: 20160805, end: 20160805
  14. TRAMADOL HYDROCHLORIDE. [Concomitant]
     Active Substance: TRAMADOL HYDROCHLORIDE
     Indication: PAIN PROPHYLAXIS
     Dosage: 50 MG, TID. CONCENTRATION 50 MG/ML
     Route: 042
     Dates: start: 20160805, end: 20160806
  15. NICARDIPINE HYDROCHLORIDE. [Concomitant]
     Active Substance: NICARDIPINE HYDROCHLORIDE
     Dosage: 2 MG, ONCE DONG-A PERDIPINE
     Route: 048
     Dates: start: 20160917, end: 20160917
  16. EMEND (FOSAPREPITANT DIMEGLUMINE) [Suspect]
     Active Substance: FOSAPREPITANT DIMEGLUMINE
     Indication: PROPHYLAXIS OF NAUSEA AND VOMITING
     Dosage: 150 MG, ONCE
     Route: 042
     Dates: start: 20160805, end: 20160805
  17. NICARDIPINE HYDROCHLORIDE. [Concomitant]
     Active Substance: NICARDIPINE HYDROCHLORIDE
     Indication: HYPERTENSION
     Dosage: 2 MG, ONCE, DONG-A PERDIPINE
     Route: 048
     Dates: start: 20160805, end: 20160805
  18. NEXIUM [Concomitant]
     Active Substance: ESOMEPRAZOLE MAGNESIUM
     Indication: PROPHYLAXIS AGAINST GASTROINTESTINAL ULCER
     Dosage: 1 TABLET (40 MG), QD
     Route: 048
     Dates: start: 20160805, end: 20160827
  19. DUPHALAC [Concomitant]
     Active Substance: LACTULOSE
     Indication: CONSTIPATION
     Dosage: 15 ML, ONCE
     Route: 048
     Dates: start: 20160806, end: 20160806
  20. TS-1 [Concomitant]
     Active Substance: GIMERACIL\OTERACIL\TEGAFUR
     Indication: GASTRIC CANCER
     Dosage: 2 CAPSULE, BID, CYCLE 1
     Route: 048
     Dates: start: 20160805, end: 20160818
  21. TS-1 [Concomitant]
     Active Substance: GIMERACIL\OTERACIL\TEGAFUR
     Dosage: 2 CAPSULE, BID, CYCLE 2
     Route: 048
     Dates: start: 20160903, end: 20160916
  22. EMEND (FOSAPREPITANT DIMEGLUMINE) [Suspect]
     Active Substance: FOSAPREPITANT DIMEGLUMINE
     Dosage: 150 MG, ONCE
     Route: 042
     Dates: start: 20160903, end: 20160903

REACTIONS (6)
  - Asthenia [Recovered/Resolved]
  - Nausea [Not Recovered/Not Resolved]
  - Vomiting [Recovered/Resolved]
  - Pyrexia [Recovered/Resolved]
  - Decreased appetite [Not Recovered/Not Resolved]
  - Intellectual disability [Not Recovered/Not Resolved]

NARRATIVE: CASE EVENT DATE: 20160808
